FAERS Safety Report 11885240 (Version 2)
Quarter: 2016Q1

REPORT INFORMATION
  Report Type: Spontaneous
  Country: EG (occurrence: EG)
  Receive Date: 20160104
  Receipt Date: 20160105
  Transmission Date: 20160526
  Serious: Yes (Death)
  Sender: FDA-Public Use
  Company Number: PHHY2015EG171515

PATIENT
  Age: 25 Year
  Sex: Male
  Weight: 70 kg

DRUGS (2)
  1. CATAFLAM [Suspect]
     Active Substance: DICLOFENAC POTASSIUM
     Indication: INFLAMMATION
  2. CATAFLAM [Suspect]
     Active Substance: DICLOFENAC POTASSIUM
     Indication: PYREXIA
     Dosage: 50 MG, BID
     Route: 048
     Dates: start: 20150525, end: 20150527

REACTIONS (1)
  - Bronchospasm [Fatal]

NARRATIVE: CASE EVENT DATE: 20150526
